FAERS Safety Report 6298284-0 (Version None)
Quarter: 2009Q3

REPORT INFORMATION
  Report Type: 
  Country: None (occurrence: None)
  Receive Date: 20090805
  Receipt Date: 20090729
  Transmission Date: 20100115
  Serious: Yes (Life-Threatening, Hospitalization, Disabling)
  Sender: FDA-Public Use
  Company Number: FR-ELI_LILLY_AND_COMPANY-FR200907006396

PATIENT
  Sex: Male

DRUGS (4)
  1. ALIMTA [Suspect]
     Indication: LUNG NEOPLASM MALIGNANT
     Dosage: 1000 MG, UNKNOWN
     Route: 042
     Dates: start: 20090415, end: 20090415
  2. AVASTIN [Concomitant]
     Indication: LUNG NEOPLASM MALIGNANT
     Dosage: 1300 MG, OTHER (EVERY 21 DAYS)
     Route: 042
     Dates: start: 20080625, end: 20081027
  3. AVASTIN [Concomitant]
     Dosage: 1300 MG, OTHER (EVERY 21 DAYS)
     Dates: start: 20090105, end: 20090415
  4. CARBOPLATIN [Concomitant]
     Indication: LUNG NEOPLASM MALIGNANT
     Dosage: 380 MG, OTHER (EVERY 21 DAYS)
     Route: 042
     Dates: start: 20080625, end: 20081027

REACTIONS (2)
  - LARGE INTESTINE PERFORATION [None]
  - PERITONITIS [None]
